FAERS Safety Report 9197117 (Version 2)
Quarter: 2013Q2

REPORT INFORMATION
  Report Type: Spontaneous
  Country: US (occurrence: US)
  Receive Date: 20130328
  Receipt Date: 20130408
  Transmission Date: 20140414
  Serious: Yes (Other)
  Sender: FDA-Public Use
  Company Number: US-UCBSA-081571

PATIENT
  Sex: Female

DRUGS (1)
  1. KEPPRA [Suspect]
     Indication: PARTIAL SEIZURES

REACTIONS (4)
  - Uterine cancer [Unknown]
  - Dyspnoea [Recovered/Resolved]
  - Asthma [Recovered/Resolved]
  - Partial seizures [Recovered/Resolved]
